FAERS Safety Report 8578590-7 (Version None)
Quarter: 2012Q3

REPORT INFORMATION
  Report Type: 
  Country: None (occurrence: None)
  Receive Date: 20120808
  Receipt Date: 20120730
  Transmission Date: 20120928
  Serious: Yes (Hospitalization)
  Sender: FDA-Public Use
  Company Number: DK-ASTRAZENECA-2012SE53606

PATIENT
  Age: 24 Year
  Sex: Female

DRUGS (5)
  1. SYMBICORT [Suspect]
     Indication: ASTHMA
     Dosage: 160/4.5MICROGRAMS TWO INHALATIONS TWICE DAILY
     Route: 055
     Dates: start: 20100801
  2. ALLERGIC MEDICINES [Concomitant]
  3. CONTRACEPTIVE PILLS [Concomitant]
  4. MEDICINES FOR OSTEOPOROSIS [Concomitant]
     Indication: OSTEOPOROSIS
  5. VITAMIN B-12 [Concomitant]

REACTIONS (4)
  - DRUG INEFFECTIVE [None]
  - CONDITION AGGRAVATED [None]
  - MALAISE [None]
  - RESPIRATORY DISORDER [None]
